FAERS Safety Report 8957510 (Version 1)
Quarter: 2012Q4

REPORT INFORMATION
  Report Type: 
  Country: FR (occurrence: FR)
  Receive Date: 20121211
  Receipt Date: 20121211
  Transmission Date: 20130627
  Serious: Yes (Life-Threatening)
  Sender: FDA-Public Use
  Company Number: FR-AMGEN-FRASP2012078852

PATIENT
  Age: 64 Year
  Sex: Male

DRUGS (18)
  1. VECTIBIX [Suspect]
     Indication: COLON CANCER
     Dosage: UNK
     Route: 042
     Dates: start: 20120518
  2. VECTIBIX [Suspect]
     Indication: METASTASES TO LIVER
  3. VECTIBIX [Suspect]
     Indication: METASTASES TO LUNG
  4. FOLINIC ACID [Suspect]
     Indication: COLON CANCER
     Dosage: UNK
     Dates: start: 20120518
  5. FOLINIC ACID [Suspect]
     Indication: METASTASES TO LIVER
  6. FOLINIC ACID [Suspect]
     Indication: METASTASES TO LUNG
  7. FLUOROURACIL [Suspect]
     Indication: COLON CANCER
     Dosage: UNK
     Dates: start: 20120518
  8. FLUOROURACIL [Suspect]
     Indication: METASTASES TO LIVER
  9. FLUOROURACIL [Suspect]
     Indication: METASTASES TO LUNG
  10. OXALIPLATIN [Suspect]
     Indication: COLON CANCER
     Dosage: 5mg/ml, unk
     Route: 042
     Dates: start: 20120518
  11. OXALIPLATIN [Suspect]
     Indication: METASTASES TO LIVER
  12. OXALIPLATIN [Suspect]
     Indication: METASTASES TO LUNG
  13. MAGNESIUM SULFATE HEPTAHYDRATE [Concomitant]
     Dosage: UNK
  14. CALCIUM GLUCONATE [Concomitant]
     Dosage: UNK
  15. ZOPHREN                            /00955301/ [Concomitant]
     Dosage: UNK
  16. SOLUMEDROL [Concomitant]
     Dosage: UNK
  17. PHYSIOTENS [Concomitant]
     Dosage: UNK
  18. LODOZ [Concomitant]
     Dosage: UNK

REACTIONS (4)
  - Respiratory distress [Recovered/Resolved]
  - Pruritus generalised [Recovered/Resolved]
  - Urticaria [Recovered/Resolved]
  - Rash [Recovered/Resolved]
